FAERS Safety Report 18692250 (Version 2)
Quarter: 2021Q1

REPORT INFORMATION
  Report Type: Other
  Country: US (occurrence: US)
  Receive Date: 20210103
  Receipt Date: 20210208
  Transmission Date: 20210419
  Serious: No
  Sender: FDA-Public Use
  Company Number: US-AMAG PHARMACEUTICALS, INC.-AMAG202003993

PATIENT
  Age: 32 Year
  Sex: Female
  Weight: 76.27 kg

DRUGS (3)
  1. ACICLOVIR [Concomitant]
     Active Substance: ACYCLOVIR
     Indication: HERPES VIRUS INFECTION
     Dates: start: 20201228
  2. GLYBURIDE. [Concomitant]
     Active Substance: GLYBURIDE
     Indication: GESTATIONAL DIABETES
     Dates: start: 20201228
  3. MAKENA [Suspect]
     Active Substance: HYDROXYPROGESTERONE CAPROATE
     Indication: PREMATURE DELIVERY
     Route: 058
     Dates: start: 20200902, end: 20201028

REACTIONS (7)
  - Illness [Unknown]
  - Injection site nodule [Unknown]
  - Vaginal haemorrhage [Recovered/Resolved]
  - Injection site swelling [Recovered/Resolved]
  - Product dose omission issue [Unknown]
  - Herpes virus infection [Not Recovered/Not Resolved]
  - Gestational diabetes [Not Recovered/Not Resolved]

NARRATIVE: CASE EVENT DATE: 20200923
